FAERS Safety Report 6142223-X (Version None)
Quarter: 2009Q2

REPORT INFORMATION
  Report Type: 
  Country: None (occurrence: None)
  Receive Date: 20090403
  Receipt Date: 20080311
  Transmission Date: 20091009
  Serious: Yes (Other)
  Sender: FDA-Public Use
  Company Number: US-ASTRAZENECA-2007UW21662

PATIENT
  Age: 50 Year
  Sex: Male
  Weight: 100.7 kg

DRUGS (22)
  1. SEROQUEL [Suspect]
     Indication: ANXIETY
     Dosage: 25MG-300MG
     Route: 048
     Dates: start: 20031101, end: 20070501
  2. SEROQUEL [Suspect]
     Indication: DEPRESSION
     Dosage: 25MG-300MG
     Route: 048
     Dates: start: 20031101, end: 20070501
  3. EFFEXOR [Concomitant]
  4. AMBIEN [Concomitant]
  5. CYCLOBENZAPRINE [Concomitant]
  6. ALPRAZOLAM [Concomitant]
  7. HYDROCODONE BITARTRATE [Concomitant]
  8. TEMAZEPAM [Concomitant]
  9. ALTOCOR [Concomitant]
  10. CARISOPRODOL [Concomitant]
  11. DURAGESIC-100 [Concomitant]
  12. OMEPRAZOLE [Concomitant]
  13. LIPITOR [Concomitant]
  14. LORAZEPAM [Concomitant]
  15. DIPHENHYDRAMINE [Concomitant]
  16. NOVOLOGUE [Concomitant]
  17. NOVOLIN [Concomitant]
  18. TRAMADOL [Concomitant]
  19. BACLOFEN [Concomitant]
  20. PANTOPRAZOLE SODIUM [Concomitant]
  21. HYDROXYZPAM [Concomitant]
  22. B-COMPLEX VIT PLUS [Concomitant]

REACTIONS (8)
  - AIR EMBOLISM [None]
  - BLOOD GLUCOSE DECREASED [None]
  - COUGH [None]
  - DIABETES MELLITUS [None]
  - DISORIENTATION [None]
  - PAIN [None]
  - PARAESTHESIA [None]
  - WEIGHT DECREASED [None]
